FAERS Safety Report 5524107-0 (Version None)
Quarter: 2007Q4

REPORT INFORMATION
  Report Type: 
  Country: None (occurrence: None)
  Receive Date: 20071121
  Receipt Date: 20071114
  Transmission Date: 20080405
  Serious: Yes (Hospitalization, Other)
  Sender: FDA-Public Use
  Company Number: US-ABBOTT-07P-163-0419859-00

PATIENT
  Sex: Female
  Weight: 88.53 kg

DRUGS (6)
  1. DEPAKOTE [Suspect]
     Indication: DRUG USE FOR UNKNOWN INDICATION
  2. QUETIAPINE FUMARATE [Suspect]
     Indication: DRUG USE FOR UNKNOWN INDICATION
  3. OLANZAPINE [Concomitant]
     Indication: DRUG USE FOR UNKNOWN INDICATION
  4. VITAMIN CAP [Concomitant]
     Indication: DRUG USE FOR UNKNOWN INDICATION
  5. ESZOPICLONE [Concomitant]
     Indication: SLEEP DISORDER
     Route: 048
  6. ESZOPICLONE [Concomitant]
     Indication: BIPOLAR DISORDER

REACTIONS (2)
  - ABASIA [None]
  - OVERDOSE [None]
